FAERS Safety Report 9012944 (Version 2)
Quarter: 2013Q1

REPORT INFORMATION
  Report Type: Report from Study
  Country: PT (occurrence: PT)
  Receive Date: 20130114
  Receipt Date: 20130121
  Transmission Date: 20140127
  Serious: Yes (Other)
  Sender: FDA-Public Use
  Company Number: PT-VIIV HEALTHCARE LIMITED-A1007709A

PATIENT
  Age: 39 Year
  Sex: Female

DRUGS (3)
  1. COMBIVIR [Suspect]
     Indication: ANTIRETROVIRAL THERAPY
     Dosage: 2TAB PER DAY
     Route: 048
     Dates: start: 20120113, end: 20120316
  2. VIRAMUNE [Suspect]
     Indication: ANTIRETROVIRAL THERAPY
     Dosage: 400MG PER DAY
     Route: 048
  3. TRUVADA [Suspect]
     Indication: ANTIRETROVIRAL THERAPY
     Dosage: 1TAB PER DAY
     Route: 048

REACTIONS (3)
  - Polyhydramnios [Unknown]
  - Live birth [Unknown]
  - Exposure during pregnancy [Unknown]
